FAERS Safety Report 16462872 (Version 5)
Quarter: 2019Q3

REPORT INFORMATION
  Report Type: Spontaneous
  Country: CA (occurrence: CA)
  Receive Date: 20190621
  Receipt Date: 20190925
  Transmission Date: 20191004
  Serious: Yes (Other)
  Sender: FDA-Public Use
  Company Number: CA-CELLTRION INC.-2019CA019895

PATIENT

DRUGS (8)
  1. INFLECTRA [Suspect]
     Active Substance: INFLIXIMAB-DYYB
     Dosage: 600 MG, EVERY 0, 2, 6  WEEKS, THEN EVERY 8 WEEKS
     Route: 042
     Dates: start: 20190618
  2. INFLECTRA [Suspect]
     Active Substance: INFLIXIMAB-DYYB
     Dosage: 600 MG, EVERY 6 WEEKS
     Route: 042
     Dates: start: 20190801, end: 20190801
  3. CORTENEMA [Concomitant]
     Active Substance: HYDROCORTISONE
     Dosage: UNK
     Route: 065
  4. PREDNISONE. [Concomitant]
     Active Substance: PREDNISONE
     Dosage: 15 MG, UNK
  5. INFLECTRA [Suspect]
     Active Substance: INFLIXIMAB-DYYB
     Dosage: 600 MG, EVERY 0, 2, 6  WEEKS, THEN EVERY 8 WEEKS
     Route: 042
     Dates: start: 20190404
  6. INFLECTRA [Suspect]
     Active Substance: INFLIXIMAB-DYYB
     Dosage: 600 MG, EVERY 0, 2, 6  WEEKS, THEN EVERY 8 WEEKS
     Route: 042
     Dates: start: 20190429
  7. PREDNISONE. [Concomitant]
     Active Substance: PREDNISONE
     Dosage: 40 MG, UNK
  8. INFLECTRA [Suspect]
     Active Substance: INFLIXIMAB-DYYB
     Indication: COLITIS ULCERATIVE
     Dosage: 600 MG, EVERY 0, 2, 6  WEEKS, THEN EVERY 8 WEEKS
     Route: 042
     Dates: start: 20190318

REACTIONS (17)
  - Poor venous access [Unknown]
  - Abdominal pain [Unknown]
  - Haematochezia [Not Recovered/Not Resolved]
  - Rash erythematous [Not Recovered/Not Resolved]
  - Flatulence [Not Recovered/Not Resolved]
  - Drug ineffective [Unknown]
  - Blood pressure fluctuation [Unknown]
  - Aphonia [Unknown]
  - Injection site haemorrhage [Unknown]
  - Off label use [Unknown]
  - Inappropriate schedule of product administration [Unknown]
  - Nasopharyngitis [Not Recovered/Not Resolved]
  - Cough [Not Recovered/Not Resolved]
  - Condition aggravated [Not Recovered/Not Resolved]
  - Defaecation urgency [Unknown]
  - Cutaneous symptom [Unknown]
  - Rhinorrhoea [Not Recovered/Not Resolved]

NARRATIVE: CASE EVENT DATE: 20190318
